FAERS Safety Report 7784317-9 (Version None)
Quarter: 2011Q3

REPORT INFORMATION
  Report Type: 
  Country: None (occurrence: None)
  Receive Date: 20110928
  Receipt Date: 20110916
  Transmission Date: 20111222
  Serious: Yes (Other)
  Sender: FDA-Public Use
  Company Number: PHHY2011JP83202

PATIENT
  Sex: Male

DRUGS (2)
  1. DIOVAN [Suspect]
     Dosage: 40 MG IN THE MORNING AND 80 MG IN THE EVENING
     Route: 048
     Dates: start: 20060101
  2. NORVASC [Concomitant]
     Dosage: 5 MG, UNK
     Route: 048

REACTIONS (3)
  - PAIN [None]
  - CEREBRAL INFARCTION [None]
  - SKIN DISORDER [None]
